FAERS Safety Report 9616926 (Version 1)
Quarter: 2013Q4

REPORT INFORMATION
  Report Type: Spontaneous
  Country: US (occurrence: GB)
  Receive Date: 20131011
  Receipt Date: 20131011
  Transmission Date: 20140711
  Serious: Yes (Other)
  Sender: FDA-Public Use
  Company Number: GB-PFIZER INC-2013292240

PATIENT
  Age: 11 Year
  Sex: Female

DRUGS (2)
  1. PHENYTOIN [Suspect]
     Indication: CONVULSION
  2. PRIMIDONE [Suspect]
     Indication: CONVULSION

REACTIONS (2)
  - Choreoathetosis [Unknown]
  - Toxicity to various agents [Unknown]
